FAERS Safety Report 19477913 (Version 1)
Quarter: 2021Q2

REPORT INFORMATION
  Report Type: Spontaneous
  Country: NL (occurrence: FR)
  Receive Date: 20210630
  Receipt Date: 20210630
  Transmission Date: 20210717
  Serious: Yes (Life-Threatening)
  Sender: FDA-Public Use
  Company Number: FR-FRESENIUS KABI-FK202106345

PATIENT
  Age: 40 Year
  Sex: Male
  Weight: 114 kg

DRUGS (2)
  1. LINEZOLID KABI [Suspect]
     Active Substance: LINEZOLID
     Indication: LUNG DISORDER
     Dosage: 1200 MG ONCE DAILY, BATCH/LOT NO.: REPORTED AS {UNKNOWN}
     Route: 042
     Dates: start: 20210512, end: 20210523
  2. TIGECYCLINE. [Concomitant]
     Active Substance: TIGECYCLINE
     Indication: LUNG DISORDER
     Dosage: 100 MG ONCE DAILY
     Route: 042
     Dates: start: 20210521, end: 20210525

REACTIONS (1)
  - Agranulocytosis [Recovered/Resolved]

NARRATIVE: CASE EVENT DATE: 20210523
